FAERS Safety Report 6102387-0 (Version None)
Quarter: 2009Q1

REPORT INFORMATION
  Report Type: 
  Country: None (occurrence: None)
  Receive Date: 20090304
  Receipt Date: 20090225
  Transmission Date: 20090719
  Serious: Yes (Other)
  Sender: FDA-Public Use
  Company Number: GB-ROCHE-617307

PATIENT
  Age: 15 Year
  Sex: Male
  Weight: 69 kg

DRUGS (4)
  1. ISOTRETINOIN [Suspect]
     Indication: ACNE CYSTIC
     Dosage: DRUG WITHDRAWN
     Route: 048
     Dates: start: 20080612, end: 20081222
  2. PREDNISOLONE [Concomitant]
     Indication: ACNE CYSTIC
     Route: 048
     Dates: start: 20080710, end: 20080810
  3. PREDNISOLONE [Concomitant]
     Route: 048
     Dates: start: 20080810, end: 20090105
  4. PREDNISOLONE [Concomitant]
     Route: 048
     Dates: start: 20080612, end: 20080710

REACTIONS (3)
  - DEPRESSION [None]
  - SLEEP DISORDER [None]
  - SUICIDAL IDEATION [None]
